FAERS Safety Report 7343670-0 (Version None)
Quarter: 2011Q1

REPORT INFORMATION
  Report Type: 
  Country: None (occurrence: None)
  Receive Date: 20110310
  Receipt Date: 20100922
  Transmission Date: 20110831
  Serious: No
  Sender: FDA-Public Use
  Company Number: A0882579A

PATIENT
  Age: 56 Year
  Sex: Female

DRUGS (3)
  1. NICOTINE POLACRILEX [Suspect]
  2. NICORETTE [Suspect]
  3. NICODERM CQ [Suspect]

REACTIONS (7)
  - NICOTINE DEPENDENCE [None]
  - INTENTIONAL DRUG MISUSE [None]
  - TEMPOROMANDIBULAR JOINT SYNDROME [None]
  - APPLICATION SITE PRURITUS [None]
  - PRODUCT QUALITY ISSUE [None]
  - DRUG ADMINISTRATION ERROR [None]
  - ANXIETY [None]
